FAERS Safety Report 4627411-3 (Version None)
Quarter: 2005Q1

REPORT INFORMATION
  Report Type: 
  Country: None (occurrence: None)
  Receive Date: 20050331
  Receipt Date: 20050317
  Transmission Date: 20050727
  Serious: Yes (Hospitalization)
  Sender: FDA-Public Use
  Company Number: 21

PATIENT
  Age: 32 Year
  Sex: Female

DRUGS (3)
  1. MINOCYCLINE HCL [Suspect]
     Indication: RHEUMATOID ARTHRITIS
  2. NAPROXEN [Concomitant]
  3. PREDNISONE [Concomitant]

REACTIONS (11)
  - ANAEMIA [None]
  - CREPITATIONS [None]
  - DYSPNOEA [None]
  - GLOMERULONEPHRITIS RAPIDLY PROGRESSIVE [None]
  - HAEMATURIA [None]
  - MICROSCOPIC POLYANGIITIS [None]
  - NECROSIS [None]
  - OXYGEN SATURATION DECREASED [None]
  - PULMONARY HAEMORRHAGE [None]
  - RENAL FAILURE ACUTE [None]
  - WEGENER'S GRANULOMATOSIS [None]
